FAERS Safety Report 4982002-X (Version None)
Quarter: 2006Q2

REPORT INFORMATION
  Report Type: 
  Country: None (occurrence: None)
  Receive Date: 20060425
  Receipt Date: 20060324
  Transmission Date: 20061013
  Serious: Yes (Hospitalization, Disabling, Other)
  Sender: FDA-Public Use
  Company Number: US-MERCK-0603USA04289

PATIENT
  Age: 56 Year
  Sex: Female
  Weight: 93 kg

DRUGS (4)
  1. VIOXX [Suspect]
     Indication: ARTHRITIS
     Route: 048
     Dates: start: 19990101
  2. GLUCOPHAGE [Concomitant]
     Indication: DIABETES MELLITUS
     Route: 065
  3. IMIPRAMINE HYDROCHLORIDE [Concomitant]
     Indication: NEURALGIA
     Route: 065
  4. THIORIDAZINE [Concomitant]
     Indication: NEURALGIA
     Route: 065

REACTIONS (19)
  - ABDOMINAL PAIN UPPER [None]
  - ANXIETY [None]
  - BACK PAIN [None]
  - CEREBROVASCULAR ACCIDENT [None]
  - CHEST PAIN [None]
  - COAGULOPATHY [None]
  - DEPRESSION [None]
  - DIABETES MELLITUS [None]
  - DISABILITY [None]
  - DYSPNOEA [None]
  - GENERAL SYMPTOM [None]
  - HAEMATOCHEZIA [None]
  - LOWER RESPIRATORY TRACT INFECTION [None]
  - PNEUMONIA [None]
  - RENAL DISORDER [None]
  - RENAL FAILURE [None]
  - RHEUMATOID ARTHRITIS [None]
  - SLEEP DISORDER [None]
  - THROMBOSIS [None]
